FAERS Safety Report 8371435-X (Version None)
Quarter: 2012Q2

REPORT INFORMATION
  Report Type: 
  Country: None (occurrence: None)
  Receive Date: 20120518
  Receipt Date: 20120507
  Transmission Date: 20120825
  Serious: No
  Sender: FDA-Public Use
  Company Number: US-ASTRAZENECA-2012SE29322

PATIENT
  Age: 6 Year
  Sex: Male
  Weight: 21.8 kg

DRUGS (1)
  1. BUDESONIDE [Suspect]
     Indication: CROHN'S DISEASE
     Route: 048
     Dates: start: 20120505

REACTIONS (4)
  - APPETITE DISORDER [None]
  - OFF LABEL USE [None]
  - PYREXIA [None]
  - LETHARGY [None]
